FAERS Safety Report 10064908 (Version 1)
Quarter: 2014Q2

REPORT INFORMATION
  Report Type: Spontaneous
  Country: US (occurrence: None)
  Receive Date: 20140404
  Receipt Date: 20140404
  Transmission Date: 20141212
  Serious: Yes (Hospitalization)
  Sender: FDA-Public Use
  Company Number: UTC-046538

PATIENT
  Age: 44 Year
  Sex: Female
  Weight: 81.65 kg

DRUGS (2)
  1. TYVASO [Suspect]
     Dosage: 4 IN 1 D
     Route: 055
     Dates: start: 20120521
  2. ADCIRCA (TADALAFIL) [Concomitant]

REACTIONS (1)
  - Fluid retention [None]
